FAERS Safety Report 23288954 (Version 2)
Quarter: 2023Q4

REPORT INFORMATION
  Report Type: Spontaneous
  Country: RU (occurrence: RU)
  Receive Date: 20231212
  Receipt Date: 20231228
  Transmission Date: 20240110
  Serious: Yes (Life-Threatening, Hospitalization, Other)
  Sender: FDA-Public Use
  Company Number: RU-OPELLA-2023OHG018922

PATIENT
  Age: 73 Year
  Sex: Female
  Weight: 80 kg

DRUGS (3)
  1. DROTAVERINE HYDROCHLORIDE [Suspect]
     Active Substance: DROTAVERINE HYDROCHLORIDE
     Indication: Product used for unknown indication
     Route: 030
     Dates: start: 20231129, end: 20231129
  2. LIDOCAINE [Suspect]
     Active Substance: LIDOCAINE
     Indication: Cystitis
     Route: 030
     Dates: start: 20231129, end: 20231129
  3. CEFTRIAXONE [Suspect]
     Active Substance: CEFTRIAXONE\CEFTRIAXONE SODIUM
     Indication: Cystitis
     Route: 030
     Dates: start: 20231129, end: 20231129

REACTIONS (6)
  - Anaphylactic shock [Recovered/Resolved]
  - Loss of consciousness [Recovered/Resolved]
  - Erythema [Recovered/Resolved]
  - Vomiting [Recovered/Resolved]
  - Pruritus [Recovered/Resolved]
  - Nausea [Recovered/Resolved]

NARRATIVE: CASE EVENT DATE: 20231129
